FAERS Safety Report 4585724-8 (Version None)
Quarter: 2005Q1

REPORT INFORMATION
  Report Type: 
  Country: None (occurrence: None)
  Receive Date: 20050209
  Receipt Date: 20050128
  Transmission Date: 20050727
  Serious: Yes (Hospitalization)
  Sender: FDA-Public Use
  Company Number: 2004-03699

PATIENT
  Age: 79 Year
  Sex: Male

DRUGS (1)
  1. IMMUCYST (BCG- IT (CONNAUGHT)), AVENTIS PASTEUR LTD. [Suspect]
     Indication: BLADDER CANCER
     Dosage: 81 MG
     Route: 043
     Dates: start: 20041027, end: 20041104

REACTIONS (6)
  - BLADDER TAMPONADE [None]
  - BLOOD CREATININE INCREASED [None]
  - HAEMATOCRIT DECREASED [None]
  - HAEMATURIA [None]
  - RED BLOOD CELL COUNT DECREASED [None]
  - URETHRAL OBSTRUCTION [None]
